APPROVED DRUG PRODUCT: LOPERAMIDE HYDROCHLORIDE
Active Ingredient: LOPERAMIDE HYDROCHLORIDE
Strength: 1MG/7.5ML
Dosage Form/Route: SOLUTION;ORAL
Application: A220100 | Product #001
Applicant: BIONPHARMA INC
Approved: Sep 19, 2025 | RLD: No | RS: No | Type: OTC